FAERS Safety Report 4434979-9 (Version None)
Quarter: 2004Q3

REPORT INFORMATION
  Report Type: 
  Country: None (occurrence: None)
  Receive Date: 20040827
  Receipt Date: 20040820
  Transmission Date: 20050211
  Serious: Yes (Hospitalization, Other)
  Sender: FDA-Public Use
  Company Number: PHNU2004DE02969

PATIENT
  Sex: Male

DRUGS (14)
  1. LOCOL [Suspect]
     Dosage: 80 MG, QD
     Route: 048
     Dates: start: 20030101, end: 20040818
  2. ALNA [Concomitant]
     Dates: end: 20040818
  3. DILATREND [Concomitant]
  4. MAGNESIUM [Concomitant]
     Dates: end: 20040818
  5. GLUCOPHAGE [Concomitant]
  6. NEOTAREN [Concomitant]
  7. VOLTAREN [Suspect]
     Route: 048
     Dates: end: 20040818
  8. UNAT [Concomitant]
  9. KALINOR [Concomitant]
     Dates: end: 20040818
  10. PLANTIVAL [Concomitant]
  11. ISCOVER [Concomitant]
  12. ASPIRIN [Concomitant]
  13. RIFUN [Concomitant]
  14. TETRAZEPAM [Concomitant]

REACTIONS (6)
  - BLOOD CREATINE PHOSPHOKINASE INCREASED [None]
  - BLOOD CREATININE INCREASED [None]
  - ECZEMA [None]
  - MUSCLE CRAMP [None]
  - ORAL MUCOSAL DISORDER [None]
  - UMBILICAL HERNIA [None]
